FAERS Safety Report 6811735-5 (Version None)
Quarter: 2010Q3

REPORT INFORMATION
  Report Type: 
  Country: None (occurrence: None)
  Receive Date: 20100701
  Receipt Date: 20100624
  Transmission Date: 20110219
  Serious: No
  Sender: FDA-Public Use
  Company Number: US-BIOGENIDEC-2010BI021229

PATIENT
  Age: 60 Year
  Sex: Male

DRUGS (1)
  1. AVONEX [Suspect]
     Indication: MULTIPLE SCLEROSIS
     Route: 030
     Dates: start: 20040714

REACTIONS (4)
  - ARTHRITIS [None]
  - GASTROENTERITIS VIRAL [None]
  - NERVE COMPRESSION [None]
  - TOOTH EXTRACTION [None]
